FAERS Safety Report 6555098-1 (Version None)
Quarter: 2010Q1

REPORT INFORMATION
  Report Type: 
  Country: None (occurrence: None)
  Receive Date: 20100126
  Receipt Date: 20100126
  Transmission Date: 20100710
  Serious: Yes (Other)
  Sender: FDA-Public Use
  Company Number: None

PATIENT
  Sex: Male
  Weight: 77.1115 kg

DRUGS (1)
  1. CLINDAMYCIN [Suspect]
     Dosage: 150 MG CAP 1 CAP 3X A DAY

REACTIONS (2)
  - COLITIS [None]
  - GASTROINTESTINAL INFECTION [None]
